FAERS Safety Report 23784558 (Version 1)
Quarter: 2024Q2

REPORT INFORMATION
  Report Type: Spontaneous
  Country: CA (occurrence: CA)
  Receive Date: 20240425
  Receipt Date: 20240425
  Transmission Date: 20240715
  Serious: Yes (Hospitalization, Other)
  Sender: FDA-Public Use
  Company Number: CA-TEVA-VS-3189190

PATIENT
  Age: 9 Year
  Sex: Male

DRUGS (16)
  1. PREDNISONE [Suspect]
     Active Substance: PREDNISONE
     Indication: Prophylaxis
     Route: 065
  2. SERTRALINE HYDROCHLORIDE [Suspect]
     Active Substance: SERTRALINE HYDROCHLORIDE
     Indication: Anxiety
     Route: 065
  3. ARIPIPRAZOLE [Suspect]
     Active Substance: ARIPIPRAZOLE
     Indication: Anxiety
     Route: 065
  4. LINEZOLID [Suspect]
     Active Substance: LINEZOLID
     Indication: Anti-infective therapy
     Route: 048
  5. VANCOMYCIN [Concomitant]
     Active Substance: VANCOMYCIN
     Indication: Bacterial infection
     Route: 033
  6. MOXIFLOXACIN HYDROCHLORIDE [Suspect]
     Active Substance: MOXIFLOXACIN HYDROCHLORIDE\MOXIFLOXACIN HYDROCHLORIDE MONOHYDRATE
     Indication: Anti-infective therapy
     Route: 048
  7. METHYLPHENIDATE [Suspect]
     Active Substance: METHYLPHENIDATE
     Indication: Anxiety
     Route: 065
  8. DOXYCYCLINE [Concomitant]
     Active Substance: DOXYCYCLINE
     Indication: Product used for unknown indication
     Route: 065
  9. FLUCONAZOLE [Concomitant]
     Active Substance: FLUCONAZOLE
     Indication: Antifungal prophylaxis
     Route: 048
  10. IMIPENEM [Concomitant]
     Active Substance: IMIPENEM
     Indication: Anti-infective therapy
     Route: 042
  11. SULFAMETHOXAZOLE\TRIMETHOPRIM [Concomitant]
     Active Substance: SULFAMETHOXAZOLE\TRIMETHOPRIM
     Indication: Product used for unknown indication
     Route: 048
  12. TACROLIMUS [Suspect]
     Active Substance: TACROLIMUS
     Indication: Prophylaxis
     Route: 065
  13. AMIKACIN [Concomitant]
     Active Substance: AMIKACIN
     Indication: Anti-infective therapy
     Route: 042
  14. CEFTAZIDIME [Concomitant]
     Active Substance: CEFTAZIDIME
     Indication: Anti-infective therapy
     Dosage: POWDER FOR SOLUTION
     Route: 033
  15. CIPROFLOXACIN [Concomitant]
     Active Substance: CIPROFLOXACIN
     Indication: Anti-infective therapy
     Route: 048
  16. CLARITHROMYCIN [Concomitant]
     Active Substance: CLARITHROMYCIN
     Indication: Product used for unknown indication
     Route: 065

REACTIONS (4)
  - Mycobacterial peritonitis [Recovered/Resolved]
  - Drug interaction [Recovered/Resolved]
  - Mycobacterium fortuitum infection [Recovered/Resolved]
  - Electrocardiogram QT prolonged [Recovered/Resolved]
